FAERS Safety Report 7475169-5 (Version None)
Quarter: 2011Q2

REPORT INFORMATION
  Report Type: 
  Country: None (occurrence: None)
  Receive Date: 20110512
  Receipt Date: 20110506
  Transmission Date: 20111010
  Serious: Yes (Other)
  Sender: FDA-Public Use
  Company Number: US-BRISTOL-MYERS SQUIBB COMPANY-15724362

PATIENT
  Age: 74 Year
  Sex: Male
  Weight: 136 kg

DRUGS (1)
  1. ORENCIA [Suspect]

REACTIONS (1)
  - TYPE 2 DIABETES MELLITUS [None]
